FAERS Safety Report 13244150 (Version 3)
Quarter: 2017Q1

REPORT INFORMATION
  Report Type: Report from Study
  Country: NL (occurrence: NL)
  Receive Date: 20170217
  Receipt Date: 20170329
  Transmission Date: 20170428
  Serious: Yes (Hospitalization)
  Sender: FDA-Public Use
  Company Number: NL-SA-2015SA218820

PATIENT
  Age: 45 Year
  Sex: Female
  Weight: 70 kg

DRUGS (12)
  1. COLECALCIFEROL [Concomitant]
     Active Substance: CHOLECALCIFEROL
     Indication: DRUG THERAPY
     Dosage: DOSE: 400 IE
     Route: 048
     Dates: start: 20120925
  2. LEMTRADA [Suspect]
     Active Substance: ALEMTUZUMAB
     Indication: MULTIPLE SCLEROSIS RELAPSE
     Route: 042
     Dates: start: 20150928, end: 20151002
  3. LEMTRADA [Suspect]
     Active Substance: ALEMTUZUMAB
     Indication: MULTIPLE SCLEROSIS RELAPSE
     Route: 042
     Dates: start: 20161019, end: 20161021
  4. COLECALCIFEROL [Concomitant]
     Active Substance: CHOLECALCIFEROL
     Indication: COELIAC DISEASE
     Dosage: DOSE: 400 IE
     Route: 048
     Dates: start: 20120925
  5. THYRAX [Concomitant]
     Active Substance: LEVOTHYROXINE
     Indication: DRUG THERAPY
     Route: 048
     Dates: start: 20060601, end: 20160108
  6. THYRAX [Concomitant]
     Active Substance: LEVOTHYROXINE
     Indication: BASEDOW^S DISEASE
     Route: 048
     Dates: start: 20060601, end: 20160108
  7. LEVONORGESTREL. [Concomitant]
     Active Substance: LEVONORGESTREL
     Indication: PROPHYLAXIS
     Route: 067
     Dates: start: 2013
  8. VALACICLOVIR [Concomitant]
     Active Substance: VALACYCLOVIR HYDROCHLORIDE
     Indication: PROPHYLAXIS
     Route: 048
     Dates: start: 20151002, end: 20151030
  9. FOLIUMZUUR [Concomitant]
     Active Substance: FOLIC ACID
     Indication: DRUG THERAPY
     Route: 048
     Dates: start: 20000601
  10. PANTOPRAZOL [Concomitant]
     Active Substance: PANTOPRAZOLE SODIUM
     Indication: PROPHYLAXIS
     Route: 048
     Dates: start: 20150121
  11. ACICLOVIR [Concomitant]
     Active Substance: ACYCLOVIR
     Indication: PROPHYLAXIS
     Route: 048
     Dates: start: 20150928, end: 20151001
  12. FOLIUMZUUR [Concomitant]
     Active Substance: FOLIC ACID
     Indication: COELIAC DISEASE
     Route: 048
     Dates: start: 20000601

REACTIONS (11)
  - Electrocardiogram abnormal [Recovered/Resolved]
  - Dizziness [Recovered/Resolved]
  - Fatigue [Not Recovered/Not Resolved]
  - Headache [Recovered/Resolved]
  - Infection [Recovered/Resolved]
  - Multiple sclerosis [Not Recovered/Not Resolved]
  - Hypotension [Recovered/Resolved]
  - Hyperglycaemia [Recovered/Resolved]
  - Contusion [Recovered/Resolved]
  - Hypothyroidism [Recovered/Resolved]
  - Hypersensitivity [Recovered/Resolved]

NARRATIVE: CASE EVENT DATE: 20150928
